FAERS Safety Report 20913844 (Version 1)
Quarter: 2022Q2

REPORT INFORMATION
  Report Type: Spontaneous
  Country: JP (occurrence: JP)
  Receive Date: 20220604
  Receipt Date: 20220604
  Transmission Date: 20220721
  Serious: Yes (Other)
  Sender: FDA-Public Use
  Company Number: JP-CHUGAI-2022020371

PATIENT
  Age: 4 Decade
  Sex: Male

DRUGS (1)
  1. HEMLIBRA [Suspect]
     Active Substance: EMICIZUMAB-KXWH
     Indication: Haemophilia A without inhibitors
     Dosage: 180 MICROGRAM, ONCE/4WEEKS
     Route: 058
     Dates: start: 2019

REACTIONS (1)
  - Haemarthrosis [Not Recovered/Not Resolved]
